FAERS Safety Report 23496642 (Version 1)
Quarter: 2024Q1

REPORT INFORMATION
  Report Type: Spontaneous
  Country: US (occurrence: None)
  Receive Date: 20240207
  Receipt Date: 20240207
  Transmission Date: 20240410
  Serious: No
  Sender: FDA-Public Use
  Company Number: US-ROCHE-3414904

PATIENT
  Age: 53 Year
  Sex: Female
  Weight: 90.8 kg

DRUGS (7)
  1. XOLAIR [Suspect]
     Active Substance: OMALIZUMAB
     Indication: Product used for unknown indication
     Dosage: 75 MG/0.5 ML
     Route: 058
  2. XOLAIR [Suspect]
     Active Substance: OMALIZUMAB
  3. XOLAIR [Suspect]
     Active Substance: OMALIZUMAB
  4. XOLAIR [Suspect]
     Active Substance: OMALIZUMAB
     Dosage: TWO 150 MG PFS + ONE 75 MG PFS
     Route: 058
  5. XOLAIR [Suspect]
     Active Substance: OMALIZUMAB
  6. XOLAIR [Suspect]
     Active Substance: OMALIZUMAB
  7. OXYGEN [Concomitant]
     Active Substance: OXYGEN
     Dosage: HAS BEEN WEARING OXYGEN FOR 10 YEARS
     Route: 045

REACTIONS (6)
  - Product complaint [Unknown]
  - Underdose [Unknown]
  - Syringe issue [Unknown]
  - Exposure via skin contact [Unknown]
  - Product dose omission issue [Unknown]
  - No adverse event [Unknown]

NARRATIVE: CASE EVENT DATE: 20230830
